FAERS Safety Report 7749268-4 (Version None)
Quarter: 2011Q3

REPORT INFORMATION
  Report Type: 
  Country: None (occurrence: None)
  Receive Date: 20110914
  Receipt Date: 20110909
  Transmission Date: 20111222
  Serious: Yes (Other)
  Sender: FDA-Public Use
  Company Number: US-PFIZER INC-2011212690

PATIENT
  Sex: Male
  Weight: 86.168 kg

DRUGS (2)
  1. ADVIL LIQUI-GELS [Suspect]
     Indication: HEADACHE
     Dosage: UNK
     Route: 048
     Dates: end: 20110901
  2. ADVIL PM [Suspect]
     Indication: SOMNOLENCE
     Dosage: UNK, DAILY
     Route: 048
     Dates: end: 20110101

REACTIONS (2)
  - GASTRIC ULCER [None]
  - GASTRITIS [None]
